FAERS Safety Report 7654944-8 (Version None)
Quarter: 2011Q3

REPORT INFORMATION
  Report Type: 
  Country: None (occurrence: None)
  Receive Date: 20110804
  Receipt Date: 20110727
  Transmission Date: 20111222
  Serious: Yes (Death, Hospitalization)
  Sender: FDA-Public Use
  Company Number: DE-CELGENEUS-062-50794-09111261

PATIENT
  Age: 80 Year
  Sex: Male
  Weight: 88 kg

DRUGS (4)
  1. GLIMEPIRID [Concomitant]
     Route: 065
  2. VIDAZA [Suspect]
     Indication: ACUTE MYELOID LEUKAEMIA
     Dosage: 75 MILLIGRAM/SQ. METER
     Route: 058
     Dates: start: 20090513, end: 20090902
  3. VIDAZA [Suspect]
     Dosage: 75 MILLIGRAM/SQ. METER
     Route: 058
     Dates: end: 20090923
  4. CIPROFLOXACIN [Concomitant]
     Route: 065

REACTIONS (7)
  - RHINORRHOEA [None]
  - DIVERTICULITIS [None]
  - COUGH [None]
  - INJECTION SITE HAEMATOMA [None]
  - SWELLING FACE [None]
  - INJECTION SITE PAIN [None]
  - ACUTE MYELOID LEUKAEMIA [None]
